FAERS Safety Report 15367714 (Version 1)
Quarter: 2018Q3

REPORT INFORMATION
  Report Type: Spontaneous
  Country: FR (occurrence: FR)
  Receive Date: 20180910
  Receipt Date: 20180910
  Transmission Date: 20181010
  Serious: Yes (Death)
  Sender: FDA-Public Use
  Company Number: PHHY2018FR094717

PATIENT
  Age: 62 Year
  Sex: Female
  Weight: 117 kg

DRUGS (7)
  1. METFORMINE HYDROCHLORIDE [Suspect]
     Active Substance: METFORMIN HYDROCHLORIDE
     Indication: TYPE 2 DIABETES MELLITUS
     Dosage: 2000 MG, QD
     Route: 048
     Dates: end: 20180805
  2. ULTRAVIST [Interacting]
     Active Substance: IOPROMIDE
     Indication: COMPUTERISED TOMOGRAM
     Dosage: 100 ML, 1 TOTAL
     Route: 042
     Dates: start: 20180731, end: 20180731
  3. NOVORAPID [Concomitant]
     Active Substance: INSULIN ASPART
     Indication: PRODUCT USED FOR UNKNOWN INDICATION
     Dosage: UNK
     Route: 065
  4. VICTOZA [Concomitant]
     Active Substance: LIRAGLUTIDE
     Indication: PRODUCT USED FOR UNKNOWN INDICATION
     Dosage: UNK
     Route: 065
  5. CIPROFLOXACINE [Concomitant]
     Active Substance: CIPROFLOXACIN
     Indication: PRODUCT USED FOR UNKNOWN INDICATION
     Dosage: UNK
     Route: 065
  6. GLICLAZIDE [Concomitant]
     Active Substance: GLICLAZIDE
     Indication: PRODUCT USED FOR UNKNOWN INDICATION
     Dosage: UNK
     Route: 065
  7. GALVUS [Concomitant]
     Active Substance: VILDAGLIPTIN
     Indication: COMPUTERISED TOMOGRAM
     Dosage: UNK
     Route: 065

REACTIONS (3)
  - Multiple organ dysfunction syndrome [Fatal]
  - Lactic acidosis [Fatal]
  - Overdose [Fatal]

NARRATIVE: CASE EVENT DATE: 20180805
